FAERS Safety Report 9669167 (Version 7)
Quarter: 2017Q3

REPORT INFORMATION
  Report Type: Report from Study
  Country: FR (occurrence: FR)
  Receive Date: 20131105
  Receipt Date: 20170915
  Transmission Date: 20171128
  Serious: Yes (Death, Life-Threatening, Hospitalization)
  Sender: FDA-Public Use
  Company Number: FR-SA-2013SA111951

PATIENT
  Age: 13 Year
  Sex: Female
  Weight: 48 kg

DRUGS (11)
  1. EVOLTRA [Suspect]
     Active Substance: CLOFARABINE
     Indication: ACUTE LYMPHOCYTIC LEUKAEMIA RECURRENT
     Dosage: ROUTE OF ADMINISTRATION: PERFUSION
     Route: 042
     Dates: start: 20120724
  2. EVOLTRA [Suspect]
     Active Substance: CLOFARABINE
     Indication: ACUTE LYMPHOCYTIC LEUKAEMIA RECURRENT
     Dosage: ROUTE OF ADMINISTRATION: PERFUSION
     Route: 042
     Dates: start: 20120911, end: 20120915
  3. CYCLOPHOSPHAMIDE. [Concomitant]
     Active Substance: CYCLOPHOSPHAMIDE
     Indication: ACUTE LYMPHOCYTIC LEUKAEMIA
     Route: 065
     Dates: start: 20120911, end: 20120915
  4. ETOPOSIDE. [Concomitant]
     Active Substance: ETOPOSIDE
     Indication: ACUTE LYMPHOCYTIC LEUKAEMIA
     Route: 065
     Dates: start: 20120911, end: 20120915
  5. METHOTREXATE. [Concomitant]
     Active Substance: METHOTREXATE
  6. VINDESINE [Concomitant]
     Active Substance: VINDESINE
     Route: 042
     Dates: end: 20120928
  7. IFOSFAMIDE. [Concomitant]
     Active Substance: IFOSFAMIDE
     Dates: end: 20120928
  8. DEXAMETHASONE. [Concomitant]
     Active Substance: DEXAMETHASONE
     Route: 048
     Dates: end: 20120928
  9. MESNA. [Concomitant]
     Active Substance: MESNA
     Route: 042
     Dates: end: 20120928
  10. METHOTREXATE. [Concomitant]
     Active Substance: METHOTREXATE
     Route: 037
     Dates: end: 20120928
  11. THIOGUANINE [Concomitant]
     Active Substance: THIOGUANINE
     Route: 048
     Dates: end: 20120928

REACTIONS (4)
  - Chest pain [Not Recovered/Not Resolved]
  - Myocardial infarction [Fatal]
  - Pneumonia [Not Recovered/Not Resolved]
  - Cardiac failure [Fatal]

NARRATIVE: CASE EVENT DATE: 20120925
